FAERS Safety Report 9364734 (Version 1)
Quarter: 2013Q2

REPORT INFORMATION
  Report Type: Spontaneous
  Country: DE (occurrence: DE)
  Receive Date: 20130624
  Receipt Date: 20130624
  Transmission Date: 20140414
  Serious: Yes (Hospitalization)
  Sender: FDA-Public Use
  Company Number: DE-UCBSA-088971

PATIENT
  Age: 20 Year
  Sex: Female
  Weight: 85 kg

DRUGS (6)
  1. VIMPAT [Suspect]
     Indication: EPILEPSY
     Dosage: 300MG/DAY
     Route: 048
  2. APYDAN EXTENT [Suspect]
     Indication: EPILEPSY
     Dosage: 600MG/DAY, DOSE WAS TAPERED
     Dates: start: 20091012, end: 200912
  3. TOPAMAX [Suspect]
     Indication: EPILEPSY
     Dosage: 200MG/DAY
     Route: 048
     Dates: start: 20091012, end: 201001
  4. TOPAMAX [Suspect]
     Indication: EPILEPSY
     Dosage: 250 MG/DAY
     Route: 048
     Dates: start: 201001, end: 20100706
  5. DIAZEPAM [Concomitant]
     Indication: EPILEPSY
     Dosage: UNKNOWN
  6. FOLIC ACID [Concomitant]
     Route: 048

REACTIONS (2)
  - Epilepsy [Unknown]
  - Pregnancy [Recovered/Resolved]
